FAERS Safety Report 24623315 (Version 5)
Quarter: 2024Q4

REPORT INFORMATION
  Report Type: Spontaneous
  Country: BR (occurrence: BR)
  Receive Date: 20241115
  Receipt Date: 20241227
  Transmission Date: 20250115
  Serious: Yes (Other)
  Sender: MERCK
  Company Number: BR-009507513-2411BRA004523

PATIENT
  Age: 46 Year
  Sex: Male
  Weight: 79 kg

DRUGS (14)
  1. JANUMET [Suspect]
     Active Substance: METFORMIN HYDROCHLORIDE\SITAGLIPTIN PHOSPHATE
     Indication: Diabetes mellitus
     Dosage: UNK, TWICE A DAY(FOR BREAKFAST AND LUNCH)
     Route: 048
     Dates: start: 202111, end: 20240606
  2. JANUMET XR [Suspect]
     Active Substance: METFORMIN HYDROCHLORIDE\SITAGLIPTIN PHOSPHATE
     Indication: Diabetes mellitus
     Dosage: ONE TABLET AT LUNCH AND ONE TABLET AT DINNER (ALSO REPORTED: AFTER LUNCH AND AFTER DINNER); STRENGTH
     Route: 048
     Dates: start: 20240608, end: 2024
  3. JANUMET XR [Suspect]
     Active Substance: METFORMIN HYDROCHLORIDE\SITAGLIPTIN PHOSPHATE
     Dosage: ONE TABLET IN THE LUNCH AND ONE TABLET FOR DINNER; STRENGTH: 500/1000 MG
     Route: 048
     Dates: start: 2024
  4. GLICLAZIDE [Suspect]
     Active Substance: GLICLAZIDE
     Indication: Diabetes mellitus
     Dosage: 2 TABLETS OF 60 MG ON AN EMPTY STOMACH, AFTER BREAKFAST
     Route: 048
     Dates: start: 2024
  5. METFORMIN HYDROCHLORIDE [Suspect]
     Active Substance: METFORMIN HYDROCHLORIDE
     Indication: Diabetes mellitus
     Dosage: UNK, QD (AFTER LUNCH)
     Dates: start: 2024, end: 2024
  6. METFORMIN HYDROCHLORIDE [Suspect]
     Active Substance: METFORMIN HYDROCHLORIDE
     Dosage: UNK, QD (AFTER BREAKFAST)
     Dates: start: 2024
  7. METFORMIN HYDROCHLORIDE [Suspect]
     Active Substance: METFORMIN HYDROCHLORIDE
     Dosage: UNK, QD (AT DINNER)
     Dates: start: 2024
  8. DAPAGLIFLOZIN [Suspect]
     Active Substance: DAPAGLIFLOZIN
     Indication: Diabetes mellitus
     Dosage: UNK, QD (AFTER/AT LUNCH)
     Dates: start: 2024
  9. RYBELSUS [Suspect]
     Active Substance: SEMAGLUTIDE
     Indication: Diabetes mellitus
     Dosage: 1 DOSAGE FORM, QD, ON AN EMPTY STOMACH
     Route: 048
     Dates: start: 2024
  10. GLIMEPIRIDE\METFORMIN [Suspect]
     Active Substance: GLIMEPIRIDE\METFORMIN
     Indication: Diabetes mellitus
     Dosage: UNK, QD (30 MINUTES AFTER SEMAGLUTIDE [RYBELSUS]); STRENGTH: 4/1000 MG
     Dates: start: 2024
  11. PIOGLITAZONE HYDROCHLORIDE [Suspect]
     Active Substance: PIOGLITAZONE HYDROCHLORIDE
     Indication: Diabetes mellitus
     Dosage: UNK, QD (AT DINNER)
     Dates: start: 2024
  12. GLYBURIDE [Suspect]
     Active Substance: GLYBURIDE
     Indication: Diabetes mellitus
     Dosage: 2 DOSAGE FORM IN FASTING AND 1 DOSAGE FORM AT DINNER
     Dates: start: 2024
  13. VILDAGLIPTIN [Suspect]
     Active Substance: VILDAGLIPTIN
     Indication: Diabetes mellitus
     Dosage: UNK
     Dates: start: 2024
  14. EZETIMIBE\ROSUVASTATIN CALCIUM [Suspect]
     Active Substance: EZETIMIBE\ROSUVASTATIN CALCIUM
     Dosage: UNK
     Dates: start: 2024

REACTIONS (20)
  - Diabetes mellitus inadequate control [Unknown]
  - Hepatic steatosis [Recovering/Resolving]
  - Hypoglycaemia [Unknown]
  - Weight decreased [Unknown]
  - Weight increased [Unknown]
  - Frustration tolerance decreased [Unknown]
  - Hunger [Unknown]
  - Blood glucose abnormal [Unknown]
  - Blood glucose decreased [Unknown]
  - Drug effect less than expected [Unknown]
  - Product dose omission issue [Unknown]
  - Intentional product misuse [Unknown]
  - Off label use [Unknown]
  - Product use issue [Unknown]
  - Prescription drug used without a prescription [Unknown]
  - Drug ineffective [Unknown]
  - Product availability issue [Unknown]
  - Product packaging difficult to open [Unknown]
  - Product prescribing issue [Unknown]
  - Drug effect less than expected [Unknown]

NARRATIVE: CASE EVENT DATE: 20240101
